FAERS Safety Report 12373547 (Version 1)
Quarter: 2016Q2

REPORT INFORMATION
  Report Type: Spontaneous
  Country: US (occurrence: US)
  Receive Date: 20160516
  Receipt Date: 20160516
  Transmission Date: 20160815
  Serious: Yes (Death, Congenital Anomaly, Other)
  Sender: FDA-Public Use
  Company Number: PHHY2015US133879

PATIENT
  Age: 6 Month
  Sex: Female

DRUGS (5)
  1. DIFLUCAN [Concomitant]
     Active Substance: FLUCONAZOLE
     Indication: PRODUCT USED FOR UNKNOWN INDICATION
     Dosage: 2 ML, QD
     Route: 048
  2. SPIRONOLACTONE. [Concomitant]
     Active Substance: SPIRONOLACTONE
     Indication: PRODUCT USED FOR UNKNOWN INDICATION
     Dosage: 0.6 ML, BID
     Route: 048
  3. FUROSEMIDE. [Concomitant]
     Active Substance: FUROSEMIDE
     Indication: PRODUCT USED FOR UNKNOWN INDICATION
     Dosage: 0.3 ML, BID
     Route: 048
  4. ZOFRAN [Suspect]
     Active Substance: ONDANSETRON HYDROCHLORIDE
     Indication: VOMITING
     Route: 065
     Dates: start: 20140805
  5. AMOXICILLIN. [Concomitant]
     Active Substance: AMOXICILLIN
     Indication: PRODUCT USED FOR UNKNOWN INDICATION
     Dosage: 0.5 ML, QD
     Route: 048

REACTIONS (16)
  - Post procedural complication [Recovered/Resolved]
  - Diabetic nephropathy [Fatal]
  - Single functional kidney [Unknown]
  - Multiple congenital abnormalities [Unknown]
  - Respiratory tract infection [Unknown]
  - Decreased activity [Unknown]
  - Truncus arteriosus persistent [Fatal]
  - Heart disease congenital [Fatal]
  - Product use issue [Unknown]
  - Cardio-respiratory arrest [Fatal]
  - Caudal regression syndrome [Unknown]
  - Ventricular septal defect [Unknown]
  - Renal aplasia [Unknown]
  - Pericardial effusion [Recovered/Resolved]
  - Gastrooesophageal reflux disease [Unknown]
  - Diarrhoea [Unknown]

NARRATIVE: CASE EVENT DATE: 20140805
